FAERS Safety Report 8858394 (Version 1)
Quarter: 2012Q4

REPORT INFORMATION
  Report Type: 
  Country: IT (occurrence: IT)
  Receive Date: 20121024
  Receipt Date: 20121024
  Transmission Date: 20130627
  Serious: Yes (Hospitalization)
  Sender: FDA-Public Use
  Company Number: IT-009507513-1003ITA00030

PATIENT
  Age: 82 Year
  Sex: Male
  Weight: 70 kg

DRUGS (7)
  1. FINASTERIDE [Suspect]
     Indication: BENIGN PROSTATIC HYPERPLASIA
     Dosage: 5 mg, qd
     Route: 048
     Dates: start: 20011207
  2. CARDIOASPIRIN [Concomitant]
     Dosage: 100 mg, qd
     Route: 048
  3. MONOKET [Concomitant]
     Dosage: 50 mg, qd
     Route: 048
  4. PRADIF [Concomitant]
     Dosage: 0.4 mg, qd
     Route: 048
  5. SUCRALFIN [Concomitant]
     Dosage: 1 g, bid
     Route: 048
  6. PRULIFLOXACIN [Concomitant]
     Dosage: UNK mg, UNK
     Route: 048
  7. MIRAPEXIN [Concomitant]
     Dosage: 0.18 mg, bid
     Route: 048

REACTIONS (1)
  - Breast cancer [Recovered/Resolved with Sequelae]
